FAERS Safety Report 4623263-6 (Version None)
Quarter: 2005Q1

REPORT INFORMATION
  Report Type: 
  Country: None (occurrence: None)
  Receive Date: 20050330
  Receipt Date: 20050318
  Transmission Date: 20050727
  Serious: Yes (Hospitalization, Other)
  Sender: FDA-Public Use
  Company Number: 2005018013

PATIENT
  Age: 45 Year
  Sex: Female

DRUGS (1)
  1. RELPAX [Suspect]
     Indication: MIGRAINE
     Dosage: 40 MG, ORAL
     Route: 048
     Dates: start: 20041001, end: 20041201

REACTIONS (2)
  - CHEST PAIN [None]
  - OESOPHAGEAL SPASM [None]
